FAERS Safety Report 5880188-6 (Version None)
Quarter: 2008Q3

REPORT INFORMATION
  Report Type: 
  Country: None (occurrence: None)
  Receive Date: 20080910
  Receipt Date: 20080910
  Transmission Date: 20090109
  Serious: Yes (Life-Threatening)
  Sender: FDA-Public Use
  Company Number: None

PATIENT
  Age: 65 Year
  Sex: Female
  Weight: 57.7 kg

DRUGS (9)
  1. RAPAMUNE [Suspect]
     Indication: LUNG TRANSPLANT
     Dosage: 4 MG ONCE DAILY OTHER
     Route: 050
     Dates: start: 20080702, end: 20080903
  2. CARDIZEM [Concomitant]
  3. MEPRON [Concomitant]
  4. FLAGYL [Concomitant]
  5. NEXIUM [Concomitant]
  6. GABAPENTIN [Concomitant]
  7. LIDOCAINE [Concomitant]
  8. NYSTATIN [Concomitant]
  9. PREDNISONE [Concomitant]

REACTIONS (2)
  - COMPLICATIONS OF TRANSPLANTED LUNG [None]
  - INTERSTITIAL LUNG DISEASE [None]
